FAERS Safety Report 7858309-5 (Version None)
Quarter: 2011Q4

REPORT INFORMATION
  Report Type: 
  Country: None (occurrence: None)
  Receive Date: 20111027
  Receipt Date: 20111012
  Transmission Date: 20120403
  Serious: Yes (Hospitalization)
  Sender: FDA-Public Use
  Company Number: US-BAYER-2011-007025

PATIENT
  Age: 42 Year
  Sex: Female
  Weight: 97.506 kg

DRUGS (4)
  1. IBUPROFEN [Concomitant]
     Dosage: UNK UNK, PRN
  2. YASMIN [Suspect]
     Dosage: UNK
     Dates: start: 20050901, end: 20061001
  3. TOPAMAX [Concomitant]
     Indication: HEADACHE
     Dosage: UNK
     Dates: start: 19980101
  4. AMITRIPTYLINE HCL [Concomitant]
     Indication: HEADACHE
     Dosage: UNK
     Dates: start: 19980101

REACTIONS (8)
  - PAIN [None]
  - ANXIETY [None]
  - LUNG DISORDER [None]
  - DEEP VEIN THROMBOSIS [None]
  - THROMBOSIS [None]
  - FEAR [None]
  - EMOTIONAL DISTRESS [None]
  - HEART INJURY [None]
